FAERS Safety Report 9147518 (Version 1)
Quarter: 2013Q1

REPORT INFORMATION
  Report Type: Spontaneous
  Country: US (occurrence: US)
  Receive Date: 20130307
  Receipt Date: 20130307
  Transmission Date: 20140127
  Serious: Yes (Other)
  Sender: FDA-Public Use
  Company Number: US-009507513-1303USA001888

PATIENT
  Sex: 0

DRUGS (4)
  1. SINGULAIR [Suspect]
     Indication: ASTHMA
  2. AMITRIPTYLINE HYDROCHLORIDE [Concomitant]
  3. FLUTICASONE PROPIONATE (+) SALMETEROL XINAFOATE [Concomitant]
     Dosage: INHALATION
     Route: 055
  4. FLUTICASONE PROPIONATE [Concomitant]

REACTIONS (2)
  - Drug ineffective [Unknown]
  - Asthma [Unknown]
